FAERS Safety Report 9685286 (Version 1)
Quarter: 2013Q4

REPORT INFORMATION
  Report Type: Report from Study
  Country: US (occurrence: US)
  Receive Date: 20131113
  Receipt Date: 20131113
  Transmission Date: 20140711
  Serious: Yes (Other)
  Sender: FDA-Public Use
  Company Number: US-JNJFOC-20131104540

PATIENT
  Sex: Female

DRUGS (1)
  1. SPORANOX [Suspect]
     Indication: PRODUCT USED FOR UNKNOWN INDICATION
     Route: 065

REACTIONS (19)
  - Tendonitis [Unknown]
  - Sexually transmitted disease [Unknown]
  - Sciatica [Unknown]
  - Menstruation irregular [Unknown]
  - Vaginitis bacterial [Unknown]
  - Bundle branch block right [Unknown]
  - Liver function test abnormal [Unknown]
  - Chest pain [Unknown]
  - Costochondritis [Unknown]
  - Gastrooesophageal reflux disease [Unknown]
  - Oedema peripheral [Unknown]
  - Vertigo positional [Unknown]
  - Toothache [Unknown]
  - Insomnia [Unknown]
  - Anxiety [Unknown]
  - Aphthous stomatitis [Unknown]
  - Cardiac murmur [Unknown]
  - Proteinuria [Unknown]
  - Candida infection [Unknown]
